FAERS Safety Report 17377115 (Version 3)
Quarter: 2020Q2

REPORT INFORMATION
  Report Type: Spontaneous
  Country: PT (occurrence: PT)
  Receive Date: 20200206
  Receipt Date: 20200608
  Transmission Date: 20200713
  Serious: Yes (Hospitalization, Other)
  Sender: FDA-Public Use
  Company Number: PT-MYLANLABS-2020M1013037

PATIENT
  Age: 57 Year
  Sex: Male

DRUGS (7)
  1. OLANZAPINE. [Suspect]
     Active Substance: OLANZAPINE
     Dosage: 1 DOSAGE FORM, TOTAL
     Route: 048
  2. FOLIC ACID. [Concomitant]
     Active Substance: FOLIC ACID
     Indication: ALCOHOLISM
     Dosage: UNK
  3. MIRTAZAPINE. [Concomitant]
     Active Substance: MIRTAZAPINE
     Indication: ALCOHOLISM
     Dosage: UNK
  4. OLANZAPINE. [Suspect]
     Active Substance: OLANZAPINE
     Indication: PRODUCT USED FOR UNKNOWN INDICATION
     Dosage: UNK
  5. THIAMINE. [Concomitant]
     Active Substance: THIAMINE
     Indication: ALCOHOLISM
     Dosage: UNK
  6. PAROXETINE. [Concomitant]
     Active Substance: PAROXETINE
     Indication: ALCOHOLISM
     Dosage: UNK
  7. OXAZEPAM. [Concomitant]
     Active Substance: OXAZEPAM
     Indication: ALCOHOLISM
     Dosage: UNK

REACTIONS (3)
  - Myalgia [Recovered/Resolved]
  - Dystonia [Recovered/Resolved]
  - Pleurothotonus [Recovered/Resolved]
